FAERS Safety Report 6986011-0 (Version None)
Quarter: 2010Q3

REPORT INFORMATION
  Report Type: 
  Country: None (occurrence: None)
  Receive Date: 20100915
  Receipt Date: 20100908
  Transmission Date: 20110219
  Serious: Yes (Other)
  Sender: FDA-Public Use
  Company Number: US-ABBOTT-10P-163-0669108-00

PATIENT
  Sex: Female
  Weight: 95.34 kg

DRUGS (4)
  1. NIASPAN [Suspect]
     Indication: HIGH DENSITY LIPOPROTEIN DECREASED
     Dates: start: 20100908, end: 20100908
  2. NIASPAN [Suspect]
     Indication: LOW DENSITY LIPOPROTEIN INCREASED
  3. LEVOTHYROXINE [Concomitant]
     Indication: HYPOTHYROIDISM
  4. CANDIGONE [Concomitant]
     Indication: FUNGAL SKIN INFECTION
     Dates: start: 20100701

REACTIONS (10)
  - BLOOD POTASSIUM DECREASED [None]
  - DIZZINESS [None]
  - FACIAL PAIN [None]
  - LOSS OF CONSCIOUSNESS [None]
  - NAUSEA [None]
  - OEDEMA PERIPHERAL [None]
  - PAIN IN EXTREMITY [None]
  - SWELLING FACE [None]
  - TONGUE BITING [None]
  - VOMITING [None]
